FAERS Safety Report 21928864 (Version 1)
Quarter: 2023Q1

REPORT INFORMATION
  Report Type: Spontaneous
  Country: AT (occurrence: AT)
  Receive Date: 20230131
  Receipt Date: 20230131
  Transmission Date: 20230418
  Serious: Yes (Other)
  Sender: FDA-Public Use
  Company Number: None

PATIENT
  Age: 39 Year
  Sex: Female

DRUGS (1)
  1. NAPROXEN [Suspect]
     Active Substance: NAPROXEN
     Indication: Analgesic therapy
     Dosage: ACCORDING TO TECHNICAL INFORMATION, NAPROBENE 500 MG - FILM-COATED TABLETS
     Route: 065
     Dates: start: 20221121, end: 20221121

REACTIONS (2)
  - Type IV hypersensitivity reaction [Unknown]
  - Drug eruption [Unknown]

NARRATIVE: CASE EVENT DATE: 20221121
